FAERS Safety Report 11410549 (Version 3)
Quarter: 2015Q3

REPORT INFORMATION
  Report Type: Spontaneous
  Country: US (occurrence: US)
  Receive Date: 20150824
  Receipt Date: 20150922
  Transmission Date: 20151125
  Serious: No
  Sender: FDA-Public Use
  Company Number: US-PFIZER INC-2015241901

PATIENT
  Age: 49 Year
  Sex: Male
  Weight: 97.96 kg

DRUGS (2)
  1. HYDROCHLOROTHIAZIDE. [Concomitant]
     Active Substance: HYDROCHLOROTHIAZIDE
     Dosage: UNK
  2. SUTENT [Suspect]
     Active Substance: SUNITINIB MALATE
     Indication: RENAL CANCER
     Dosage: 50 MG, DAILY
     Dates: start: 20150803, end: 20150901

REACTIONS (3)
  - Diarrhoea [Unknown]
  - Renal cancer [Unknown]
  - Disease progression [Unknown]
